FAERS Safety Report 9173490 (Version 1)
Quarter: 2013Q1

REPORT INFORMATION
  Report Type: Spontaneous
  Country: GB (occurrence: None)
  Receive Date: 20130314
  Receipt Date: 20130314
  Transmission Date: 20140127
  Serious: Yes (Disabling)
  Sender: FDA-Public Use
  Company Number: 2013-03577

PATIENT
  Age: 83 Year
  Sex: Male
  Weight: 64 kg

DRUGS (8)
  1. DOXAZOSIN [Suspect]
     Indication: PRODUCT USED FOR UNKNOWN INDICATION
     Dates: start: 20130212
  2. RAMIPRIL (RAMIPRIL) [Concomitant]
  3. SIMVASTATIN (SIMVASTATIN) [Concomitant]
  4. LERCANIDIPINE HYDROCHLORIDE (LERCANIDIPINE HYDROCHLORIDE) [Concomitant]
  5. ASPIRIN (ACETYLSALICYLIC ACID) [Concomitant]
  6. LANSOPRAZOLE (LANSOPRAZOLE) [Concomitant]
  7. ATORVASTATIN (ATORVASTATIN) [Concomitant]
  8. VARDENAFIL (VARDENAFIL) [Concomitant]

REACTIONS (1)
  - Circulatory collapse [None]
